FAERS Safety Report 6250590-1 (Version None)
Quarter: 2009Q2

REPORT INFORMATION
  Report Type: 
  Country: None (occurrence: None)
  Receive Date: 20090630
  Receipt Date: 20090619
  Transmission Date: 20091009
  Serious: Yes (Other)
  Sender: FDA-Public Use
  Company Number: US-JNJFOC-20090607722

PATIENT
  Sex: Female
  Weight: 67.13 kg

DRUGS (6)
  1. REMICADE [Suspect]
     Indication: CROHN'S DISEASE
     Dosage: 2 INFUSIONS
     Route: 042
  2. ASACOL [Concomitant]
     Indication: CROHN'S DISEASE
  3. PREDNISONE TAB [Concomitant]
     Indication: CROHN'S DISEASE
  4. PROZAC [Concomitant]
     Indication: DEPRESSION
  5. ALL OTHER THERAPEUTIC DRUGS [Concomitant]
     Indication: CONTRACEPTION
  6. HYOMAX [Concomitant]
     Indication: CROHN'S DISEASE

REACTIONS (1)
  - GASTRIC ULCER [None]
